FAERS Safety Report 8606095-3 (Version None)
Quarter: 2012Q3

REPORT INFORMATION
  Report Type: 
  Country: None (occurrence: None)
  Receive Date: 20120820
  Receipt Date: 20120814
  Transmission Date: 20120928
  Serious: Yes (Hospitalization)
  Sender: FDA-Public Use
  Company Number: US-GILEAD-2012-0059820

PATIENT
  Sex: Female

DRUGS (1)
  1. LETAIRIS [Suspect]
     Indication: PRODUCT USED FOR UNKNOWN INDICATION
     Dosage: 5 MG, UNK
     Route: 048
     Dates: start: 20070802

REACTIONS (7)
  - BRADYCARDIA [None]
  - HEART RATE DECREASED [None]
  - FATIGUE [None]
  - FLUID OVERLOAD [None]
  - HEART RATE IRREGULAR [None]
  - NAUSEA [None]
  - DIZZINESS [None]
